FAERS Safety Report 4280959-6 (Version None)
Quarter: 2004Q1

REPORT INFORMATION
  Report Type: 
  Country: None (occurrence: None)
  Receive Date: 20040127
  Receipt Date: 20040116
  Transmission Date: 20041129
  Serious: Yes (Hospitalization, Disabling)
  Sender: FDA-Public Use
  Company Number: HQ5862420DEC2002

PATIENT
  Sex: Female

DRUGS (1)
  1. DIMETAPP [Suspect]
     Indication: NASOPHARYNGITIS
     Dosage: UNKNOWN; ORAL
     Route: 048
     Dates: start: 19961101

REACTIONS (1)
  - HAEMORRHAGIC STROKE [None]
